FAERS Safety Report 22947044 (Version 2)
Quarter: 2023Q4

REPORT INFORMATION
  Report Type: Spontaneous
  Country: US (occurrence: US)
  Receive Date: 20230915
  Receipt Date: 20231010
  Transmission Date: 20240109
  Serious: Yes (Other)
  Sender: FDA-Public Use
  Company Number: US-OPELLA-2023OHG007691

PATIENT
  Age: 61 Year
  Sex: Male

DRUGS (10)
  1. GOLD BOND ORIGINAL STRENGTH POWDER [Suspect]
     Active Substance: MENTHOL\ZINC OXIDE
  2. ALBUTEROL SULFATE [Concomitant]
     Active Substance: ALBUTEROL SULFATE
     Dosage: HFA 90 MCG/ACTUATION AEROSOL INHALER
  3. AZELASTINE [Concomitant]
     Active Substance: AZELASTINE
     Dosage: 137 MCG (0.1 %) NASAL SPRAY AEROSOL
     Route: 045
  4. GLUCOSAMINE SULFATE [Concomitant]
     Active Substance: GLUCOSAMINE SULFATE
     Dosage: 500 MG-50 MG-25 G-40 IG TABLET
  5. GABAPENTIN [Concomitant]
     Active Substance: GABAPENTIN
     Dosage: 300MG CAPSULE
  6. IBUPROFEN [Concomitant]
     Active Substance: IBUPROFEN
  7. OLMESARTAN [Concomitant]
     Active Substance: OLMESARTAN
     Dosage: 40MG
  8. HYDROCHLOROTHIAZIDE [Concomitant]
     Active Substance: HYDROCHLOROTHIAZIDE
     Dosage: 12.5 MG TABLET
  9. FISH OIL\OMEGA-3 FATTY ACIDS [Concomitant]
     Active Substance: FISH OIL\OMEGA-3 FATTY ACIDS
     Dosage: 300 MG-1000 MG CAPSULE
  10. OXYCODONE [Concomitant]
     Active Substance: OXYCODONE

REACTIONS (1)
  - Epithelioid mesothelioma [Unknown]
